FAERS Safety Report 7267661-3 (Version None)
Quarter: 2011Q1

REPORT INFORMATION
  Report Type: 
  Country: None (occurrence: None)
  Receive Date: 20110121
  Receipt Date: 20110106
  Transmission Date: 20110831
  Serious: Yes (Hospitalization)
  Sender: FDA-Public Use
  Company Number: 2011000084

PATIENT
  Age: 48 Year
  Sex: Male

DRUGS (1)
  1. TARCEVA [Suspect]
     Indication: LUNG NEOPLASM
     Dosage: 100 MG, DAILY, ORAL; 75 MG DAILY, ORAL
     Route: 048
     Dates: start: 20101126

REACTIONS (3)
  - HYPOXIA [None]
  - NEUROPATHY PERIPHERAL [None]
  - ARTHRALGIA [None]
